FAERS Safety Report 21812336 (Version 2)
Quarter: 2023Q1

REPORT INFORMATION
  Report Type: Spontaneous
  Country: DE (occurrence: DE)
  Receive Date: 20230103
  Receipt Date: 20230123
  Transmission Date: 20230417
  Serious: Yes (Life-Threatening, Other)
  Sender: FDA-Public Use
  Company Number: DE-BoehringerIngelheim-2022-BI-195458

PATIENT
  Age: 57 Year
  Sex: Male

DRUGS (7)
  1. METFORMIN [Suspect]
     Active Substance: METFORMIN HYDROCHLORIDE
     Indication: Diabetes mellitus
     Route: 048
     Dates: start: 202108, end: 202207
  2. METFORMIN [Suspect]
     Active Substance: METFORMIN HYDROCHLORIDE
     Route: 048
     Dates: start: 2018, end: 202108
  3. XIPAMIDE [Suspect]
     Active Substance: XIPAMIDE
     Indication: Cardiac failure
     Route: 048
     Dates: start: 202108, end: 202207
  4. JARDIANCE [Suspect]
     Active Substance: EMPAGLIFLOZIN
     Indication: Cardiac failure
     Route: 048
     Dates: start: 202108, end: 20220705
  5. ENTRESTO 24/26 [Concomitant]
     Indication: Cardiac failure
     Route: 048
     Dates: start: 202108, end: 20220705
  6. SPIRONOLACTONE [Concomitant]
     Active Substance: SPIRONOLACTONE
     Indication: Cardiac failure
     Route: 048
     Dates: start: 202108, end: 20220705
  7. BISOPROLOL [Concomitant]
     Active Substance: BISOPROLOL
     Indication: Cardiac failure
     Route: 048
     Dates: start: 202108, end: 202207

REACTIONS (21)
  - Pancreatitis acute [Unknown]
  - Acute kidney injury [Recovered/Resolved]
  - Metabolic acidosis [Recovered/Resolved]
  - Cardiac failure [Unknown]
  - Hypovolaemic shock [Unknown]
  - Altered state of consciousness [Recovered/Resolved]
  - Gastroenteritis clostridial [Unknown]
  - Renal impairment [Unknown]
  - Atrial fibrillation [Unknown]
  - Dehydration [Unknown]
  - Pyrexia [Unknown]
  - Gastroenteritis [Recovering/Resolving]
  - Dehydration [Unknown]
  - Dyspnoea [Unknown]
  - Hypophagia [Unknown]
  - Fluid intake reduced [Unknown]
  - Hypovolaemia [Unknown]
  - Vomiting [Unknown]
  - Diarrhoea [Unknown]
  - Nausea [Unknown]
  - Abdominal pain [Unknown]

NARRATIVE: CASE EVENT DATE: 20220706
